FAERS Safety Report 9241245 (Version 1)
Quarter: 2013Q1

REPORT INFORMATION
  Report Type: Spontaneous
  Country: US (occurrence: None)
  Receive Date: 20121120
  Receipt Date: 20121120
  Transmission Date: 20140127
  Serious: No
  Sender: FDA-Public Use
  Company Number: 1000038186

PATIENT
  Age: 30 Year
  Sex: Female

DRUGS (5)
  1. VIIBRYD [Suspect]
     Indication: DEPRESSION
     Dosage: 10 MG (10 MG, 1 IN 1 D), ORAL
     Route: 048
     Dates: start: 201204, end: 2012
  2. VIIBRYD [Suspect]
     Indication: DEPRESSION
     Dosage: 20 MG BID (20 MG, 2 IN 1 D), ORAL
     Route: 048
     Dates: start: 2012, end: 2012
  3. XYZAL (LEVOCETIRIZINE DIHYDROCHLORIDE) (LEVOCETIRIZINE DIHYDROCHLORIDE) [Concomitant]
  4. MULTIVITAMINE (MULTIVITAMINS) (MULTIVITAMINS) [Concomitant]
  5. VITAMIN D (VITAMIN D) (VITAMIN D) [Concomitant]

REACTIONS (3)
  - Paraesthesia [None]
  - Confusional state [None]
  - Disorientation [None]
